FAERS Safety Report 4522199-9 (Version None)
Quarter: 2004Q4

REPORT INFORMATION
  Report Type: 
  Country: None (occurrence: None)
  Receive Date: 20041207
  Receipt Date: 20041124
  Transmission Date: 20050328
  Serious: Yes (Hospitalization)
  Sender: FDA-Public Use
  Company Number: USA041184589

PATIENT
  Age: 74 Year
  Sex: Female

DRUGS (3)
  1. EVISTA [Suspect]
     Indication: OSTEOPOROSIS
     Dosage: 60 MG
     Dates: start: 20030101, end: 20041101
  2. NEXIUM [Concomitant]
  3. PROTONIX [Concomitant]

REACTIONS (4)
  - BREAST PAIN [None]
  - KNEE ARTHROPLASTY [None]
  - SKIN DISCOLOURATION [None]
  - TREATMENT NONCOMPLIANCE [None]
